FAERS Safety Report 12175086 (Version 1)
Quarter: 2016Q1

REPORT INFORMATION
  Report Type: Other
  Country: US (occurrence: US)
  Receive Date: 20160314
  Receipt Date: 20160314
  Transmission Date: 20160526
  Serious: Yes (Other)
  Sender: FDA-Public Use
  Company Number: US-RICOLA USA INC.-1048989

PATIENT
  Age: 49 Year
  Sex: Male

DRUGS (2)
  1. VENTOLIN HFA [Suspect]
     Active Substance: ALBUTEROL SULFATE
  2. THE ORIGINAL NATURAL HERB COUGH DROPS [Suspect]
     Active Substance: MENTHOL
     Route: 048

REACTIONS (6)
  - Tachycardia [Unknown]
  - Atrial fibrillation [Unknown]
  - Blood pressure increased [Unknown]
  - Dizziness [Unknown]
  - Palpitations [Unknown]
  - Overdose [Unknown]
